FAERS Safety Report 8055568-3 (Version None)
Quarter: 2012Q1

REPORT INFORMATION
  Report Type: 
  Country: None (occurrence: None)
  Receive Date: 20120119
  Receipt Date: 20120109
  Transmission Date: 20120608
  Serious: Yes (Other)
  Sender: FDA-Public Use
  Company Number: IT-SANOFI-AVENTIS-2011SA067234

PATIENT
  Sex: Female

DRUGS (5)
  1. DEXAMETHASONE TAB [Concomitant]
     Indication: PREMEDICATION
  2. DOCETAXEL [Suspect]
     Dosage: ONE HOUR INFUSION ON DAYS 2 AND 9, EVERY 21 DAYS
     Route: 065
  3. TRASTUZUMAB [Suspect]
     Route: 042
  4. DOXORUBICIN HCL [Suspect]
     Dosage: ONE HOUR INFUSION ON DAY 1, EVERY 21 DAYS
     Route: 065
  5. TRASTUZUMAB [Suspect]
     Dosage: LOADING DOSE IN A 90 MIN INFUSION ON DAY 2
     Route: 065

REACTIONS (1)
  - ALTERED STATE OF CONSCIOUSNESS [None]
